FAERS Safety Report 16121928 (Version 1)
Quarter: 2019Q2

REPORT INFORMATION
  Report Type: Spontaneous
  Country: US (occurrence: US)
  Receive Date: 20190326
  Receipt Date: 20190326
  Transmission Date: 20190711
  Serious: No
  Sender: FDA-Public Use
  Company Number: None

PATIENT
  Age: 49 Year
  Sex: Female
  Weight: 81.9 kg

DRUGS (10)
  1. DIAZEPAM. [Concomitant]
     Active Substance: DIAZEPAM
  2. MULTIVITAMIN [Concomitant]
     Active Substance: VITAMINS
  3. GELATIN [Concomitant]
     Active Substance: GELATIN
  4. FISH OIL [Concomitant]
     Active Substance: FISH OIL
  5. WELLBUTRIN XL [Concomitant]
     Active Substance: BUPROPION HYDROCHLORIDE
  6. OMEPRAZOLE. [Concomitant]
     Active Substance: OMEPRAZOLE
  7. CHELATES MAGNESIUM [Concomitant]
  8. DULERA [Suspect]
     Active Substance: FORMOTEROL FUMARATE DIHYDRATE\MOMETASONE FUROATE
     Indication: ASTHMA
     Dosage: ?          OTHER STRENGTH:PER ACTUATION;QUANTITY:2 INHALATION(S);?
     Route: 055
     Dates: start: 20170109, end: 20170609
  9. VITAMIN D3 [Concomitant]
     Active Substance: CHOLECALCIFEROL
  10. ZYRTEC [Concomitant]
     Active Substance: CETIRIZINE HYDROCHLORIDE

REACTIONS (7)
  - Nervousness [None]
  - Incorrect dose administered [None]
  - Product dose omission [None]
  - Device use error [None]
  - Feeling jittery [None]
  - Dysphonia [None]
  - Tremor [None]

NARRATIVE: CASE EVENT DATE: 20190326
